FAERS Safety Report 6627650-6 (Version None)
Quarter: 2010Q1

REPORT INFORMATION
  Report Type: 
  Country: None (occurrence: None)
  Receive Date: 20100311
  Receipt Date: 20100305
  Transmission Date: 20100710
  Serious: Yes (Death, Hospitalization)
  Sender: FDA-Public Use
  Company Number: US-BAYER-201014572NA

PATIENT
  Age: 38 Year
  Sex: Male

DRUGS (6)
  1. NEXAVAR [Suspect]
     Indication: HEPATIC NEOPLASM MALIGNANT
     Dosage: TOTAL DAILY DOSE: 800 MG  UNIT DOSE: 200 MG
     Route: 048
     Dates: start: 20100205, end: 20100218
  2. ATENOLOL [Concomitant]
     Dates: start: 20100101
  3. OXYCODONE [Concomitant]
     Dosage: TOTAL DAILY DOSE: 25 MG
     Dates: start: 20100101
  4. COLACE [Concomitant]
     Dosage: TOTAL DAILY DOSE: 200 MG
     Dates: start: 20100217
  5. SENNA-S [Concomitant]
     Dosage: ONE TABLET
     Dates: start: 20100217
  6. SENNA-S [Concomitant]
     Dosage: ONE TABLET
     Dates: start: 20100217

REACTIONS (6)
  - ABDOMINAL PAIN [None]
  - ASTHENIA [None]
  - DEHYDRATION [None]
  - DYSPNOEA [None]
  - HYPERKALAEMIA [None]
  - RENAL FAILURE [None]
